FAERS Safety Report 12477635 (Version 2)
Quarter: 2016Q2

REPORT INFORMATION
  Report Type: Spontaneous
  Country: DE (occurrence: DE)
  Receive Date: 20160617
  Receipt Date: 20160629
  Transmission Date: 20160815
  Serious: Yes (Life-Threatening, Hospitalization, Other)
  Sender: FDA-Public Use
  Company Number: DE-BAYER-2016-081178

PATIENT
  Age: 80 Year
  Sex: Female

DRUGS (2)
  1. ULTRAVIST [Suspect]
     Active Substance: IOPROMIDE
     Indication: ABDOMINAL DISCOMFORT
  2. ULTRAVIST [Suspect]
     Active Substance: IOPROMIDE
     Indication: COMPUTERISED TOMOGRAM ABDOMEN
     Dosage: 100 ML, UNK
     Route: 042
     Dates: start: 20160425

REACTIONS (3)
  - Cardiac arrest [None]
  - Product contamination [None]
  - Anaphylactic shock [None]

NARRATIVE: CASE EVENT DATE: 20160425
